FAERS Safety Report 24549973 (Version 1)
Quarter: 2024Q4

REPORT INFORMATION
  Report Type: Spontaneous
  Country: US (occurrence: None)
  Receive Date: 20241024
  Receipt Date: 20241024
  Transmission Date: 20250115
  Serious: Yes (Other)
  Sender: Public
  Company Number: None

PATIENT
  Age: 11 Month
  Sex: Male
  Weight: 9.4 kg

DRUGS (1)
  1. VIGABATRIN [Suspect]
     Active Substance: VIGABATRIN
     Indication: Infantile spasms
     Dosage: FREQUENCY : TWICE A DAY;?
     Route: 048
     Dates: start: 20240903

REACTIONS (3)
  - Peritoneal dialysis [None]
  - Incorrect dose administered [None]
  - Haemoglobin increased [None]

NARRATIVE: CASE EVENT DATE: 20241003
